FAERS Safety Report 9646043 (Version 2)
Quarter: 2014Q2

REPORT INFORMATION
  Report Type: Spontaneous
  Country: FR (occurrence: FR)
  Receive Date: 20131025
  Receipt Date: 20140429
  Transmission Date: 20141212
  Serious: Yes (Hospitalization, Other)
  Sender: FDA-Public Use
  Company Number: FR-PFIZER INC-2013303086

PATIENT
  Sex: 0

DRUGS (1)
  1. IBUPROFEN [Suspect]
     Indication: SINUSITIS
     Dosage: UNK

REACTIONS (3)
  - Eye infection [Unknown]
  - Cellulitis orbital [Unknown]
  - Off label use [Unknown]
